FAERS Safety Report 5210518-X (Version None)
Quarter: 2006Q4

REPORT INFORMATION
  Report Type: 
  Country: None (occurrence: None)
  Receive Date: 20061106
  Receipt Date: 20060810
  Transmission Date: 20070319
  Serious: Yes (Other)
  Sender: FDA-Public Use
  Company Number: US-JNJFOC-20060804927

PATIENT
  Age: 69 Year
  Sex: Female
  Weight: 95.2554 kg

DRUGS (7)
  1. MOTRIN [Suspect]
     Indication: BACK DISORDER
     Dosage: SEE IMAGE
     Route: 048
     Dates: start: 20040101
  2. NIFEDIPINE [Suspect]
     Indication: HYPERTENSION
     Dosage: 60 MG, 1 IN 1 DAY
     Dates: start: 20040101
  3. PERCOCET [Concomitant]
  4. SOMA [Concomitant]
  5. CLONIDINE [Concomitant]
  6. LISINOPRIL [Concomitant]
  7. BUMEX [Concomitant]

REACTIONS (1)
  - HYPERTENSION [None]
